FAERS Safety Report 9156216 (Version 3)
Quarter: 2013Q2

REPORT INFORMATION
  Report Type: Spontaneous
  Country: US (occurrence: US)
  Receive Date: 20130218
  Receipt Date: 20130415
  Transmission Date: 20140414
  Serious: Yes (Death)
  Sender: FDA-Public Use
  Company Number: US-RB-050035-13

PATIENT
  Age: 26 Year
  Sex: Male

DRUGS (4)
  1. SUBOXONE FILM [Suspect]
     Indication: DRUG DEPENDENCE
     Route: 065
  2. CITALOPRAM [Suspect]
     Indication: PRODUCT USED FOR UNKNOWN INDICATION
     Dosage: 20 MG, UNCLEAR WHETHER UNIT OR DAILY DOSE
     Route: 065
  3. KEPPRA [Suspect]
     Indication: PRODUCT USED FOR UNKNOWN INDICATION
     Dosage: 500 MG, UNCLEAR WHETHER UNIT OR DAILY DOSE
     Route: 065
  4. TRIAZOLAM [Suspect]
     Indication: PRODUCT USED FOR UNKNOWN INDICATION
     Dosage: ^0.25 MG^, UNCLEAR WHETHER UNIT OR DAILY DOSE
     Route: 065

REACTIONS (1)
  - Convulsion [Fatal]
